FAERS Safety Report 20152459 (Version 1)
Quarter: 2021Q4

REPORT INFORMATION
  Report Type: Spontaneous
  Country: US (occurrence: US)
  Receive Date: 20211206
  Receipt Date: 20211206
  Transmission Date: 20220303
  Serious: No
  Sender: FDA-Public Use
  Company Number: US-UROGEN PHARMA LTD.-2021-UGN-000089

PATIENT
  Age: 71 Year
  Sex: Female

DRUGS (12)
  1. JELMYTO [Suspect]
     Active Substance: MITOMYCIN
     Indication: Transitional cell cancer of the renal pelvis and ureter
     Dosage: UNK (INSTILLATION IN LEFT KINDNEY)
     Dates: start: 2020, end: 2020
  2. JELMYTO [Suspect]
     Active Substance: MITOMYCIN
     Dosage: UNK (INSTILLATION IN LEFT KINDNEY)
     Dates: start: 2020, end: 2020
  3. JELMYTO [Suspect]
     Active Substance: MITOMYCIN
     Dosage: UNK (INSTILLATION IN LEFT KINDNEY)
     Dates: start: 2020, end: 2020
  4. JELMYTO [Suspect]
     Active Substance: MITOMYCIN
     Dosage: UNK (INSTILLATION IN LEFT KINDNEY)
     Dates: start: 2020, end: 2020
  5. JELMYTO [Suspect]
     Active Substance: MITOMYCIN
     Dosage: UNK (INSTILLATION IN LEFT KINDNEY)
     Dates: start: 2020, end: 2020
  6. JELMYTO [Suspect]
     Active Substance: MITOMYCIN
     Dosage: UNK (INSTILLATION IN LEFT KINDNEY)
     Dates: start: 2020, end: 2020
  7. JELMYTO [Suspect]
     Active Substance: MITOMYCIN
     Dosage: UNK (INSTILLATION IN LEFT KINDNEY)
     Dates: start: 2021, end: 2021
  8. JELMYTO [Suspect]
     Active Substance: MITOMYCIN
     Dosage: UNK (INSTILLATION IN LEFT KINDNEY)
     Dates: start: 2021, end: 2021
  9. JELMYTO [Suspect]
     Active Substance: MITOMYCIN
     Dosage: UNK (INSTILLATION IN LEFT KINDNEY)
     Dates: start: 2021, end: 2021
  10. JELMYTO [Suspect]
     Active Substance: MITOMYCIN
     Dosage: UNK (INSTILLATION IN LEFT KINDNEY)
     Dates: start: 2021, end: 2021
  11. JELMYTO [Suspect]
     Active Substance: MITOMYCIN
     Dosage: UNK (INSTILLATION IN LEFT KINDNEY)
     Dates: start: 2021, end: 2021
  12. JELMYTO [Suspect]
     Active Substance: MITOMYCIN
     Dosage: UNK (INSTILLATION IN LEFT KINDNEY)
     Dates: start: 2021, end: 2021

REACTIONS (1)
  - Neoplasm recurrence [Unknown]

NARRATIVE: CASE EVENT DATE: 20210101
